FAERS Safety Report 10167763 (Version 3)
Quarter: 2014Q2

REPORT INFORMATION
  Report Type: Spontaneous
  Country: US (occurrence: CA)
  Receive Date: 20140512
  Receipt Date: 20140522
  Transmission Date: 20141212
  Serious: Yes (Death, Hospitalization)
  Sender: FDA-Public Use
  Company Number: CA-FRI-1000067245

PATIENT
  Sex: Male
  Weight: 90.71 kg

DRUGS (4)
  1. ROFLUMILAST [Suspect]
  2. PAXIL [Concomitant]
  3. MORPHINE [Concomitant]
  4. PANTOLOC [Concomitant]

REACTIONS (2)
  - Sudden death [Fatal]
  - Chronic obstructive pulmonary disease [Unknown]
